FAERS Safety Report 22136889 (Version 13)
Quarter: 2025Q1

REPORT INFORMATION
  Report Type: Report from Study
  Country: US (occurrence: US)
  Receive Date: 20230324
  Receipt Date: 20250127
  Transmission Date: 20250409
  Serious: Yes (Hospitalization, Other)
  Sender: TAKEDA
  Company Number: US-TAKEDA-US202003340

PATIENT
  Age: 62 Year
  Sex: Female

DRUGS (2)
  1. HUMAN IMMUNOGLOBULIN G [Suspect]
     Active Substance: HUMAN IMMUNOGLOBULIN G
     Indication: Immunodeficiency common variable
  2. HUMAN IMMUNOGLOBULIN G [Suspect]
     Active Substance: HUMAN IMMUNOGLOBULIN G
     Indication: Primary immunodeficiency syndrome

REACTIONS (33)
  - Retinal tear [Unknown]
  - Macular degeneration [Unknown]
  - Cataract [Unknown]
  - Cerebral haemorrhage [Unknown]
  - Pneumonia [Recovering/Resolving]
  - Candida infection [Unknown]
  - Bursitis [Unknown]
  - Speech disorder [Unknown]
  - Pulmonary mass [Unknown]
  - Autonomic nervous system imbalance [Unknown]
  - Tooth abscess [Unknown]
  - Postural orthostatic tachycardia syndrome [Unknown]
  - Blood pressure abnormal [Unknown]
  - Heart rate abnormal [Unknown]
  - Dehydration [Unknown]
  - Viral infection [Unknown]
  - Infection [Unknown]
  - Connective tissue disorder [Unknown]
  - Arthropathy [Unknown]
  - Gastrointestinal infection [Recovering/Resolving]
  - Respiratory syncytial virus infection [Recovered/Resolved]
  - Sinus congestion [Not Recovered/Not Resolved]
  - Musculoskeletal discomfort [Unknown]
  - Brain fog [Unknown]
  - Weight increased [Unknown]
  - Asthenia [Unknown]
  - Lymphadenopathy [Unknown]
  - Cough [Not Recovered/Not Resolved]
  - Back pain [Unknown]
  - Fatigue [Not Recovered/Not Resolved]
  - Complication associated with device [Unknown]
  - Dermatitis contact [Unknown]
  - COVID-19 [Unknown]

NARRATIVE: CASE EVENT DATE: 20240430
